FAERS Safety Report 25752417 (Version 1)
Quarter: 2025Q3

REPORT INFORMATION
  Report Type: Report from Study
  Country: EU (occurrence: EU)
  Receive Date: 20250902
  Receipt Date: 20250902
  Transmission Date: 20251021
  Serious: Yes (Death, Hospitalization, Other)
  Sender: MYLAN
  Company Number: EU-GSK-FR2025GSK064900

PATIENT
  Age: 55 Year
  Sex: Female
  Weight: 50 kg

DRUGS (28)
  1. PACLITAXEL [Suspect]
     Active Substance: PACLITAXEL
     Indication: Endometrial cancer
     Dates: start: 20250325, end: 20250415
  2. PACLITAXEL [Suspect]
     Active Substance: PACLITAXEL
     Dates: start: 20250325, end: 20250415
  3. PACLITAXEL [Suspect]
     Active Substance: PACLITAXEL
     Route: 042
     Dates: start: 20250325, end: 20250415
  4. PACLITAXEL [Suspect]
     Active Substance: PACLITAXEL
     Route: 042
     Dates: start: 20250325, end: 20250415
  5. PACLITAXEL [Suspect]
     Active Substance: PACLITAXEL
  6. PACLITAXEL [Suspect]
     Active Substance: PACLITAXEL
  7. PACLITAXEL [Suspect]
     Active Substance: PACLITAXEL
     Route: 042
  8. PACLITAXEL [Suspect]
     Active Substance: PACLITAXEL
     Route: 042
  9. PACLITAXEL [Suspect]
     Active Substance: PACLITAXEL
  10. PACLITAXEL [Suspect]
     Active Substance: PACLITAXEL
     Route: 042
  11. PACLITAXEL [Suspect]
     Active Substance: PACLITAXEL
  12. PACLITAXEL [Suspect]
     Active Substance: PACLITAXEL
     Route: 042
  13. CARBOPLATIN [Suspect]
     Active Substance: CARBOPLATIN
     Indication: Endometrial cancer
     Dates: start: 20250325, end: 20250415
  14. CARBOPLATIN [Suspect]
     Active Substance: CARBOPLATIN
     Dates: start: 20250325, end: 20250415
  15. CARBOPLATIN [Suspect]
     Active Substance: CARBOPLATIN
     Route: 042
     Dates: start: 20250325, end: 20250415
  16. CARBOPLATIN [Suspect]
     Active Substance: CARBOPLATIN
     Route: 042
     Dates: start: 20250325, end: 20250415
  17. CARBOPLATIN [Suspect]
     Active Substance: CARBOPLATIN
  18. CARBOPLATIN [Suspect]
     Active Substance: CARBOPLATIN
  19. CARBOPLATIN [Suspect]
     Active Substance: CARBOPLATIN
     Route: 042
  20. CARBOPLATIN [Suspect]
     Active Substance: CARBOPLATIN
     Route: 042
  21. CARBOPLATIN [Suspect]
     Active Substance: CARBOPLATIN
  22. CARBOPLATIN [Suspect]
     Active Substance: CARBOPLATIN
     Route: 042
  23. CARBOPLATIN [Suspect]
     Active Substance: CARBOPLATIN
  24. CARBOPLATIN [Suspect]
     Active Substance: CARBOPLATIN
     Route: 042
  25. DOSTARLIMAB [Suspect]
     Active Substance: DOSTARLIMAB
     Indication: Endometrial cancer
     Dates: start: 20250325, end: 20250516
  26. DOSTARLIMAB [Suspect]
     Active Substance: DOSTARLIMAB
     Route: 065
     Dates: start: 20250325, end: 20250516
  27. DOSTARLIMAB [Suspect]
     Active Substance: DOSTARLIMAB
     Route: 065
     Dates: start: 20250325, end: 20250516
  28. DOSTARLIMAB [Suspect]
     Active Substance: DOSTARLIMAB
     Dates: start: 20250325, end: 20250516

REACTIONS (3)
  - Bronchopneumopathy [Fatal]
  - Faecal vomiting [Recovered/Resolved]
  - Malignant neoplasm progression [Unknown]

NARRATIVE: CASE EVENT DATE: 20250423
